FAERS Safety Report 7040914-X (Version None)
Quarter: 2010Q4

REPORT INFORMATION
  Report Type: 
  Country: None (occurrence: None)
  Receive Date: 20101013
  Receipt Date: 20101004
  Transmission Date: 20110411
  Serious: Yes (Life-Threatening, Hospitalization)
  Sender: FDA-Public Use
  Company Number: US-KINGPHARMUSA00001-K201001235

PATIENT
  Sex: Female
  Weight: 136.5 kg

DRUGS (20)
  1. EMBEDA [Suspect]
     Indication: BACK PAIN
     Dosage: UNK, Q6H
     Route: 048
     Dates: start: 20100215, end: 20100301
  2. EMBEDA [Suspect]
     Indication: BACK INJURY
  3. COUMADIN [Suspect]
     Indication: THROMBOSIS
     Dosage: 7.5 MG X4D, 10 MG X3D
     Route: 048
     Dates: start: 20080101, end: 20100301
  4. COUMADIN [Suspect]
     Dosage: 7.5 MG X4D, 10 MG X3D
     Route: 048
     Dates: start: 20100101
  5. PRILOSEC [Concomitant]
     Indication: ABDOMINAL DISCOMFORT
     Dosage: UNK
     Route: 048
  6. ACTOS [Concomitant]
     Indication: TYPE 2 DIABETES MELLITUS
     Dosage: 45 MG, QD
     Route: 048
  7. CRESTOR [Concomitant]
     Indication: BLOOD CHOLESTEROL INCREASED
     Dosage: 10 MG, QD
     Route: 048
  8. ZOLOFT [Concomitant]
     Dosage: 50 MG, QD
     Route: 048
  9. PREDNISONE [Concomitant]
     Indication: RHEUMATOID ARTHRITIS
     Dosage: 10 MG, BID
     Route: 048
  10. SODIUM BICARBONATE [Concomitant]
     Indication: DIABETIC NEUROPATHY
     Dosage: 750 MG, QID
     Route: 048
  11. POTASSIUM [Concomitant]
     Indication: SUPPLEMENTATION THERAPY
     Dosage: 20 MG, BID
     Route: 048
  12. MOBIC [Concomitant]
     Indication: RHEUMATOID ARTHRITIS
     Dosage: 15 MG, QD
     Route: 048
  13. AXERT [Concomitant]
     Indication: MIGRAINE
     Dosage: UNK
     Route: 048
  14. FORTEO [Concomitant]
     Dosage: UNK, INJECTION
  15. VERAPAMIL [Concomitant]
     Indication: TACHYCARDIA
     Dosage: 180 MG, BID
     Route: 048
  16. LASIX [Concomitant]
     Dosage: 40 MG, QD
     Route: 048
  17. MAXAIR [Concomitant]
     Indication: ASTHMA
     Dosage: UNK, INHALER
  18. IRON [Concomitant]
     Indication: IRON DEFICIENCY
     Dosage: UNK
  19. VITAMIN D [Concomitant]
     Dosage: UNK
     Route: 048
  20. VITAMIN B COMPLEX CAP [Concomitant]
     Dosage: UNK
     Route: 048

REACTIONS (5)
  - ASTHENIA [None]
  - HAEMOGLOBIN DECREASED [None]
  - INTERNATIONAL NORMALISED RATIO INCREASED [None]
  - LARGE INTESTINAL HAEMORRHAGE [None]
  - MELAENA [None]
